FAERS Safety Report 6759391-9 (Version None)
Quarter: 2010Q2

REPORT INFORMATION
  Report Type: 
  Country: None (occurrence: None)
  Receive Date: 20100528
  Receipt Date: 20100417
  Transmission Date: 20101027
  Serious: Yes (Hospitalization, Other)
  Sender: FDA-Public Use
  Company Number: MIN-00617

PATIENT
  Age: 14 Year
  Sex: Male

DRUGS (4)
  1. MINOCYCLINE HCL [Suspect]
     Indication: ACNE
  2. ADDERALL XR (AMPHETAMINE, DEXTROAMPHETAMINE MIXED SALTS) [Concomitant]
  3. QUETIAPINE [Concomitant]
  4. LITHIUM [Concomitant]

REACTIONS (13)
  - ACTIVATED PARTIAL THROMBOPLASTIN TIME PROLONGED [None]
  - ALANINE AMINOTRANSFERASE INCREASED [None]
  - ASPARTATE AMINOTRANSFERASE INCREASED [None]
  - AUTOIMMUNE THYROIDITIS [None]
  - BLOOD CREATININE INCREASED [None]
  - BLOOD LACTATE DEHYDROGENASE INCREASED [None]
  - DRUG RASH WITH EOSINOPHILIA AND SYSTEMIC SYMPTOMS [None]
  - FIBRIN D DIMER INCREASED [None]
  - HYPONATRAEMIA [None]
  - INTERNATIONAL NORMALISED RATIO INCREASED [None]
  - LEUKOCYTOSIS [None]
  - PROTHROMBIN TIME PROLONGED [None]
  - SPLENOMEGALY [None]
